FAERS Safety Report 6391077-5 (Version None)
Quarter: 2009Q4

REPORT INFORMATION
  Report Type: 
  Country: None (occurrence: None)
  Receive Date: 20091006
  Receipt Date: 20091006
  Transmission Date: 20100525
  Serious: Yes (Hospitalization)
  Sender: FDA-Public Use
  Company Number: None

PATIENT
  Age: 66 Year
  Sex: Male
  Weight: 93.2 kg

DRUGS (1)
  1. OXALIPLATIN [Suspect]
     Indication: COLON CANCER
     Dosage: 170 MG ONCE IV
     Route: 042
     Dates: start: 20090608, end: 20090608

REACTIONS (11)
  - CHILLS [None]
  - HYPOTENSION [None]
  - LUNG DISORDER [None]
  - LUNG INFILTRATION [None]
  - NAUSEA [None]
  - PRURITUS [None]
  - PYREXIA [None]
  - SEPSIS [None]
  - TACHYCARDIA [None]
  - URTICARIA [None]
  - VOMITING [None]
